FAERS Safety Report 7986720 (Version 3)
Quarter: 2014Q1

REPORT INFORMATION
  Report Type: Spontaneous
  Country: US (occurrence: US)
  Receive Date: 20110613
  Receipt Date: 20140210
  Transmission Date: 20141002
  Serious: No
  Sender: FDA-Public Use
  Company Number: US-BIOGENIDEC-2011BI020772

PATIENT
  Age: 48 Year
  Sex: Female

DRUGS (14)
  1. TYSABRI [Suspect]
     Indication: MULTIPLE SCLEROSIS
     Route: 042
     Dates: start: 20080611
  2. TYSABRI [Suspect]
     Indication: MULTIPLE SCLEROSIS
     Route: 042
     Dates: start: 2011, end: 201306
  3. DIGOXIN [Concomitant]
  4. MAGNESIUM [Concomitant]
  5. PANTOPRAZOLE [Concomitant]
  6. ATENOLOL [Concomitant]
  7. SIMVASTATIN [Concomitant]
  8. VITAMIN C [Concomitant]
  9. LYRICA [Concomitant]
  10. NORTRIPTYLINE [Concomitant]
  11. VITAMIN D [Concomitant]
  12. PERCOCET [Concomitant]
  13. BENADRYL [Concomitant]
  14. ZONISAMIDE [Concomitant]

REACTIONS (2)
  - Fatigue [Recovered/Resolved]
  - Headache [Recovered/Resolved]
